FAERS Safety Report 11836196 (Version 3)
Quarter: 2016Q4

REPORT INFORMATION
  Report Type: Spontaneous
  Country: DK (occurrence: DK)
  Receive Date: 20151215
  Receipt Date: 20161214
  Transmission Date: 20170206
  Serious: Yes (Other)
  Sender: FDA-Public Use
  Company Number: DK-PFIZER INC-2015420433

PATIENT
  Age: 49 Year
  Sex: Male

DRUGS (5)
  1. GABAPENTIN. [Suspect]
     Active Substance: GABAPENTIN
     Dosage: 1500 MG, DAILY
     Dates: start: 20110913, end: 20111002
  2. GABAPENTIN. [Suspect]
     Active Substance: GABAPENTIN
     Indication: PAIN
     Dosage: 600 MG, DAILY (300 MG X 2 AT NIGHT)
     Route: 048
     Dates: start: 20110905
  3. MAGNESIA ^DAK^ [Concomitant]
     Indication: CONSTIPATION
     Dosage: 500-1000 MG, AS NEEDED
     Route: 048
     Dates: start: 20110905
  4. GABAPENTIN. [Suspect]
     Active Substance: GABAPENTIN
     Dosage: DOSE WAS INCREASED WITHIN THE PERIOD OF TIME
     Route: 048
     Dates: start: 20110905, end: 20111002
  5. CIRCADIN [Concomitant]
     Active Substance: MELATONIN
     Dosage: 2 MG, UNK
     Route: 048
     Dates: end: 20110905

REACTIONS (9)
  - Pruritus [Not Recovered/Not Resolved]
  - Lethargy [Not Recovered/Not Resolved]
  - Fatigue [Not Recovered/Not Resolved]
  - Sensory disturbance [Not Recovered/Not Resolved]
  - Restlessness [Not Recovered/Not Resolved]
  - Muscle spasms [Not Recovered/Not Resolved]
  - Erectile dysfunction [Not Recovered/Not Resolved]
  - Dizziness [Recovering/Resolving]
  - Drug ineffective for unapproved indication [Unknown]

NARRATIVE: CASE EVENT DATE: 201109
